FAERS Safety Report 19964549 (Version 3)
Quarter: 2021Q4

REPORT INFORMATION
  Report Type: Spontaneous
  Country: JP (occurrence: JP)
  Receive Date: 20211018
  Receipt Date: 20211227
  Transmission Date: 20220303
  Serious: Yes (Death, Hospitalization)
  Sender: FDA-Public Use
  Company Number: JP-BAYER-2021A228304

PATIENT
  Age: 6 Decade
  Sex: Male

DRUGS (3)
  1. ADEMPAS [Suspect]
     Active Substance: RIOCIGUAT
     Indication: Pulmonary arterial hypertension
     Dosage: 1.5 MG, TID
     Dates: start: 2021
  2. ADEMPAS [Suspect]
     Active Substance: RIOCIGUAT
     Indication: Atrial septal defect
  3. OPSUMIT [Concomitant]
     Active Substance: MACITENTAN

REACTIONS (4)
  - Pulmonary arterial hypertension [Fatal]
  - Atrial septal defect [Fatal]
  - Hospitalisation [None]
  - Brain natriuretic peptide increased [Fatal]

NARRATIVE: CASE EVENT DATE: 20210101
